FAERS Safety Report 17667162 (Version 1)
Quarter: 2020Q2

REPORT INFORMATION
  Report Type: Spontaneous
  Country: US (occurrence: US)
  Receive Date: 20200414
  Receipt Date: 20200414
  Transmission Date: 20200713
  Serious: Yes (Other)
  Sender: FDA-Public Use
  Company Number: US-BAYER-2020-058488

PATIENT
  Sex: Female
  Weight: 61.23 kg

DRUGS (7)
  1. ATENOLOL. [Concomitant]
     Active Substance: ATENOLOL
     Indication: ARRHYTHMIA
     Dosage: 500 MG, BID
     Route: 048
     Dates: start: 1998, end: 1999
  2. NAPROSYN [Concomitant]
     Active Substance: NAPROXEN
     Indication: PAIN
  3. HYDROXYCHLOROQUINE [Concomitant]
     Active Substance: HYDROXYCHLOROQUINE
  4. ALEVE [Suspect]
     Active Substance: NAPROXEN SODIUM
     Indication: PAIN
  5. VITAMINS NOS [Concomitant]
     Active Substance: VITAMINS
  6. XELJANZ [Concomitant]
     Active Substance: TOFACITINIB CITRATE
     Indication: RHEUMATOID ARTHRITIS
  7. LEVOTHYROXINE. [Concomitant]
     Active Substance: LEVOTHYROXINE
     Indication: THYROID DISORDER
     Dosage: 75 MCG/L, QD
     Route: 048
     Dates: start: 1990

REACTIONS (2)
  - Blindness [Unknown]
  - Renal failure [Unknown]
